FAERS Safety Report 6496705-1 (Version None)
Quarter: 2009Q4

REPORT INFORMATION
  Report Type: 
  Country: None (occurrence: None)
  Receive Date: 20091211
  Receipt Date: 20091119
  Transmission Date: 20100525
  Serious: Yes (Other)
  Sender: FDA-Public Use
  Company Number: AVE_01242_2009

PATIENT
  Sex: Female
  Weight: 81.1939 kg

DRUGS (15)
  1. CLONIDINE [Suspect]
     Indication: HYPERTENSION
     Dosage: (0.2 MG QD, VIA 1/WEEKLY PATCH TOPICAL)
     Route: 061
     Dates: start: 20091022, end: 20090101
  2. CARDURA [Suspect]
     Indication: DRUG USE FOR UNKNOWN INDICATION
     Dosage: (4 MG), (8 MG)
     Dates: end: 20091103
  3. CARDURA [Suspect]
     Indication: DRUG USE FOR UNKNOWN INDICATION
     Dosage: (4 MG), (8 MG)
     Dates: start: 20091104
  4. NIFEDIPINE [Suspect]
     Indication: DRUG USE FOR UNKNOWN INDICATION
     Dosage: (60 MG BID)
     Dates: end: 20091102
  5. BABY ASPIRIN [Concomitant]
  6. METOPROLOL TARTRATE [Concomitant]
  7. GLIPIZIDE [Concomitant]
  8. TRAMADOL HCL [Concomitant]
  9. FERROUS SULFATE TAB [Concomitant]
  10. SIMVASTATIN [Concomitant]
  11. PLAVIX [Concomitant]
  12. ACTOS [Concomitant]
  13. PEPCID [Concomitant]
  14. CALCITRIOL [Concomitant]
  15. MULTI-VITAMINS [Concomitant]

REACTIONS (7)
  - BLOOD PRESSURE INADEQUATELY CONTROLLED [None]
  - BLOOD PRESSURE INCREASED [None]
  - DRUG INEFFECTIVE [None]
  - HAEMATOMA [None]
  - OEDEMA PERIPHERAL [None]
  - PRODUCT ADHESION ISSUE [None]
  - PRODUCT QUALITY ISSUE [None]
